FAERS Safety Report 18495579 (Version 1)
Quarter: 2020Q4

REPORT INFORMATION
  Report Type: Spontaneous
  Country: US (occurrence: US)
  Receive Date: 20201112
  Receipt Date: 20201112
  Transmission Date: 20210114
  Serious: Yes (Other)
  Sender: FDA-Public Use
  Company Number: US-BAYER-2020-237184

PATIENT
  Age: 76 Year
  Sex: Female

DRUGS (5)
  1. MIRALAX [Suspect]
     Active Substance: POLYETHYLENE GLYCOL 3350
     Indication: COLONOSCOPY
     Dosage: UNK
     Route: 048
     Dates: start: 20191027
  2. TOPROL XL [Concomitant]
     Active Substance: METOPROLOL SUCCINATE
  3. MIRALAX [Suspect]
     Active Substance: POLYETHYLENE GLYCOL 3350
     Indication: COLONOSCOPY
     Dosage: 510 GRAMS IN 64 LITERS OF GATORADE
     Route: 048
     Dates: start: 20201029, end: 20201029
  4. PROPOL [Concomitant]
  5. NEXIUM I.V. [Concomitant]
     Active Substance: ESOMEPRAZOLE SODIUM

REACTIONS (9)
  - Off label use [None]
  - Dehydration [Recovered/Resolved]
  - Haematemesis [Recovered/Resolved]
  - Urine odour abnormal [Recovered/Resolved]
  - Urine output decreased [Recovered/Resolved]
  - Off label use [None]
  - Product use in unapproved indication [Recovered/Resolved]
  - Product use in unapproved indication [None]
  - Heart rate increased [Recovered/Resolved]

NARRATIVE: CASE EVENT DATE: 20191027
